FAERS Safety Report 10907174 (Version 1)
Quarter: 2015Q1

REPORT INFORMATION
  Report Type: Spontaneous
  Country: US (occurrence: US)
  Receive Date: 20150312
  Receipt Date: 20150312
  Transmission Date: 20150721
  Serious: No
  Sender: FDA-Public Use
  Company Number: US-TEVA-547146USA

PATIENT
  Sex: Female

DRUGS (1)
  1. PLAN B ONE-STEP [Suspect]
     Active Substance: LEVONORGESTREL
     Indication: POST COITAL CONTRACEPTION
     Dosage: 1.5 MILLIGRAM DAILY;
     Route: 048
     Dates: start: 20150214, end: 20150214

REACTIONS (9)
  - Breast tenderness [Unknown]
  - Pain in extremity [Unknown]
  - Vaginal haemorrhage [Recovered/Resolved]
  - Nausea [Unknown]
  - Abdominal pain upper [Unknown]
  - Abdominal rigidity [Unknown]
  - Abdominal distension [Unknown]
  - Muscle spasms [Unknown]
  - Flank pain [Unknown]

NARRATIVE: CASE EVENT DATE: 201502
